FAERS Safety Report 6266563-9 (Version None)
Quarter: 2009Q3

REPORT INFORMATION
  Report Type: 
  Country: None (occurrence: None)
  Receive Date: 20090710
  Receipt Date: 20090701
  Transmission Date: 20100115
  Serious: Yes (Hospitalization)
  Sender: FDA-Public Use
  Company Number: APP200900341

PATIENT
  Age: 66 Year
  Sex: Female

DRUGS (14)
  1. FLUOROURACIL INJ [Suspect]
     Indication: DRUG USE FOR UNKNOWN INDICATION
  2. ELOXATIN [Suspect]
     Indication: COLON CANCER
     Dosage: 120 MG, FIRST CYCLE RECEIVED 26/JAN/2009., INTRAVENOUS (NOT OTHERWISE SPECIFIED)
  3. LEUCOVORIN CALCIUM [Suspect]
     Indication: COLON CANCER
     Dosage: FIRST CYCLE RECEIVED 26/JAN/2009, INTRAVENOUS
     Dates: start: 20090126
  4. SITAGLIPTIN (SITAGLIPTIN PHOSPHATE) [Concomitant]
  5. RAMIPRIL [Concomitant]
  6. DILTIAZEM [Concomitant]
  7. CITALOPRAM HYDROMBROMIDE (CITALOPRAM HYDROBROMIDE) [Concomitant]
  8. HYDROCODONE (HYDROCODONE) [Concomitant]
  9. ACETAMINOPHEN [Concomitant]
  10. METOPROLOL TARTRATE [Concomitant]
  11. METFORMIN HCL [Concomitant]
  12. LEVOTHYROXINE SODIUM [Concomitant]
  13. ALPRAZOLAM [Concomitant]
  14. SIMVASTATIN [Concomitant]

REACTIONS (5)
  - DYSPNOEA [None]
  - FLUSHING [None]
  - INFUSION RELATED REACTION [None]
  - OXYGEN SATURATION DECREASED [None]
  - PRURITUS [None]
